FAERS Safety Report 15196070 (Version 1)
Quarter: 2018Q3

REPORT INFORMATION
  Report Type: Spontaneous
  Country: US (occurrence: US)
  Receive Date: 20180725
  Receipt Date: 20180725
  Transmission Date: 20181010
  Serious: No
  Sender: FDA-Public Use
  Company Number: US-EPIC PHARMA LLC-2017EPC00139

PATIENT
  Age: 9 Year
  Sex: Female
  Weight: 29.48 kg

DRUGS (1)
  1. DEXTROAMPHET SACCHARAT, AMPHET ASPARTATE, DEXTROAMPHET SULFATE AND AMPHET SULFAT [Suspect]
     Active Substance: AMPHETAMINE ASPARTATE\AMPHETAMINE SULFATE\DEXTROAMPHETAMINE SACCHARATE\DEXTROAMPHETAMINE SULFATE
     Indication: ATTENTION DEFICIT/HYPERACTIVITY DISORDER
     Dosage: 5 MG, 2X/DAY
     Route: 048
     Dates: start: 201701

REACTIONS (4)
  - Viral infection [Recovered/Resolved]
  - Drug dose omission [Unknown]
  - Abdominal pain upper [Unknown]
  - Somnolence [Unknown]

NARRATIVE: CASE EVENT DATE: 2017
